FAERS Safety Report 4848592-2 (Version None)
Quarter: 2005Q4

REPORT INFORMATION
  Report Type: 
  Country: None (occurrence: None)
  Receive Date: 20051206
  Receipt Date: 20051125
  Transmission Date: 20060501
  Serious: Yes (Other)
  Sender: FDA-Public Use
  Company Number: 006#1#2005-00055

PATIENT
  Age: 53 Year
  Sex: Male

DRUGS (1)
  1. EDEX [Suspect]
     Indication: ERECTILE DYSFUNCTION
     Dosage: SOMETIMES 60 UG/DAY  1.5 YEARS
     Route: 017
     Dates: start: 20040101, end: 20050101

REACTIONS (5)
  - ANORECTAL DISORDER [None]
  - INFLAMMATION [None]
  - MUCOSAL MEMBRANE HYPERPLASIA [None]
  - NEOPLASM MALIGNANT [None]
  - PROCTALGIA [None]
